FAERS Safety Report 23643075 (Version 1)
Quarter: 2024Q1

REPORT INFORMATION
  Report Type: Spontaneous
  Country: US (occurrence: US)
  Receive Date: 20240318
  Receipt Date: 20240318
  Transmission Date: 20240410
  Serious: Yes (Hospitalization, Other)
  Sender: FDA-Public Use
  Company Number: US-PFIZER INC-202400066129

PATIENT
  Age: 88 Year
  Sex: Female

DRUGS (1)
  1. IBRANCE [Suspect]
     Active Substance: PALBOCICLIB
     Dosage: 1 CAPSULE DAILY FOR 14 DAYS, THEN 14 DAYS OFF

REACTIONS (5)
  - Cerebrovascular accident [Unknown]
  - Myocardial infarction [Unknown]
  - Fatigue [Unknown]
  - Skin infection [Unknown]
  - Rash [Unknown]

NARRATIVE: CASE EVENT DATE: 20230101
